FAERS Safety Report 8798318 (Version 2)
Quarter: 2013Q1

REPORT INFORMATION
  Report Type: Spontaneous
  Country: JP (occurrence: JP)
  Receive Date: 20120920
  Receipt Date: 20130123
  Transmission Date: 20140127
  Serious: Yes (Other)
  Sender: FDA-Public Use
  Company Number: JP-ROCHE-1126252

PATIENT
  Age: 61 Year
  Sex: Male
  Weight: 65 kg

DRUGS (7)
  1. PEGASYS [Suspect]
     Indication: CHRONIC HEPATITIS C
     Route: 058
     Dates: start: 20120706, end: 20120816
  2. THYRADIN [Concomitant]
     Route: 065
  3. NU-LOTAN [Concomitant]
     Indication: HYPERTENSION
     Route: 048
     Dates: start: 20120316
  4. QVAR [Concomitant]
     Indication: ASTHMA
     Route: 055
     Dates: start: 20091019
  5. ACETAMINOPHEN [Concomitant]
     Route: 065
  6. TAKEPRON [Concomitant]
     Route: 065
  7. THYRADIN-S [Concomitant]
     Indication: HYPOTHYROIDISM
     Route: 048
     Dates: start: 20090609

REACTIONS (1)
  - Rheumatoid arthritis [Recovered/Resolved]
